FAERS Safety Report 5594113-9 (Version None)
Quarter: 2008Q1

REPORT INFORMATION
  Report Type: 
  Country: None (occurrence: None)
  Receive Date: 20080116
  Receipt Date: 20080109
  Transmission Date: 20080703
  Serious: Yes (Death)
  Sender: FDA-Public Use
  Company Number: US-PFIZER INC-2008003015

PATIENT
  Age: 49 Year
  Sex: Male

DRUGS (9)
  1. LAMOTRIGINE [Suspect]
  2. VENLAFAXINE HCL [Suspect]
  3. TRAZODONE HCL [Suspect]
  4. LISINOPRIL AND HYDROCHLOROTHIAZIDE [Suspect]
  5. LISINOPRIL [Suspect]
  6. HYDROXYZINE HYDROCHLORIDE [Suspect]
  7. SILDENAFIL CITRATE [Suspect]
  8. FUROSEMIDE [Suspect]
  9. GABAPENTIN [Suspect]

REACTIONS (3)
  - CARDIAC ARREST [None]
  - COMPLETED SUICIDE [None]
  - RESPIRATORY ARREST [None]
